FAERS Safety Report 4996404-9 (Version None)
Quarter: 2006Q2

REPORT INFORMATION
  Report Type: 
  Country: None (occurrence: None)
  Receive Date: 20060505
  Receipt Date: 20060426
  Transmission Date: 20061013
  Serious: Yes (Death, Hospitalization)
  Sender: FDA-Public Use
  Company Number: CIP06000966

PATIENT
  Age: 81 Year
  Sex: Female

DRUGS (7)
  1. BENET (RISENDRONATE SODIUM) TABLET, 2.5MG [Suspect]
     Indication: OSTEOPOROSIS
     Dosage: 2.5 MG DAILY, ORAL
     Route: 048
     Dates: start: 20060317, end: 20060330
  2. LOXONIN (LOXOPROFEN SODIUM) [Concomitant]
  3. CODEINE PHOSPHATE [Concomitant]
  4. HUSTAZOL (CLOPERASTINE HYDROCHLORIDE) [Concomitant]
  5. MAGNESIUM OXIDE [Concomitant]
  6. ULGUT (BENEXATE HYDROCHLORIDE) [Concomitant]
  7. LEVOFLOXACIN [Concomitant]

REACTIONS (15)
  - BACTERIAL INFECTION [None]
  - BLOOD CREATININE INCREASED [None]
  - CONDITION AGGRAVATED [None]
  - HAEMATOCRIT DECREASED [None]
  - HAEMOGLOBIN DECREASED [None]
  - HENOCH-SCHONLEIN PURPURA [None]
  - HYPOAESTHESIA [None]
  - INTERSTITIAL LUNG DISEASE [None]
  - LEUKOCYTOCLASTIC VASCULITIS [None]
  - MUSCULAR WEAKNESS [None]
  - OEDEMA PERIPHERAL [None]
  - PETECHIAE [None]
  - PNEUMONIA [None]
  - PROTEIN URINE PRESENT [None]
  - RED BLOOD CELL COUNT DECREASED [None]
